FAERS Safety Report 13429021 (Version 1)
Quarter: 2017Q2

REPORT INFORMATION
  Report Type: Spontaneous
  Country: JP (occurrence: JP)
  Receive Date: 20170411
  Receipt Date: 20170411
  Transmission Date: 20170830
  Serious: Yes (Other)
  Sender: FDA-Public Use
  Company Number: PHHY2017JP053436

PATIENT
  Age: 64 Year
  Sex: Male

DRUGS (2)
  1. METHOTREXATE. [Suspect]
     Active Substance: METHOTREXATE
     Indication: MYOPATHY
     Route: 065
  2. PREDNISOLON [Concomitant]
     Active Substance: PREDNISOLONE
     Indication: MYOPATHY
     Route: 065

REACTIONS (2)
  - Immune-mediated necrotising myopathy [Recovered/Resolved]
  - Chronic myeloid leukaemia [Recovered/Resolved]
